FAERS Safety Report 14125348 (Version 3)
Quarter: 2017Q4

REPORT INFORMATION
  Report Type: Spontaneous
  Country: JP (occurrence: JP)
  Receive Date: 20171025
  Receipt Date: 20171107
  Transmission Date: 20180321
  Serious: Yes (Other)
  Sender: FDA-Public Use
  Company Number: JP-SA-2017SA206267

PATIENT
  Age: 77 Year
  Sex: Female

DRUGS (10)
  1. LEVOCETIRIZINE [Suspect]
     Active Substance: LEVOCETIRIZINE
     Indication: PRURITUS
     Dosage: ON MONDAY AND THURSDAY
     Route: 048
     Dates: start: 20171013
  2. FUROSEMIDE. [Concomitant]
     Active Substance: FUROSEMIDE
  3. SENNOSIDE [Concomitant]
     Active Substance: SENNOSIDES
  4. NIFEDIPINE. [Concomitant]
     Active Substance: NIFEDIPINE
  5. MENATETRENONE [Concomitant]
     Active Substance: MENATETRENONE
  6. SEROQUEL [Concomitant]
     Active Substance: QUETIAPINE FUMARATE
  7. QUETIAPINE. [Concomitant]
     Active Substance: QUETIAPINE
  8. LEVOCETIRIZINE [Suspect]
     Active Substance: LEVOCETIRIZINE
     Indication: PRURITUS
     Route: 048
     Dates: start: 20140616, end: 20171012
  9. EVAMYL [Concomitant]
     Active Substance: LORMETAZEPAM
  10. NEOMALLERMIN [Concomitant]
     Active Substance: DEXCHLORPHENIRAMINE MALEATE

REACTIONS (5)
  - Gait disturbance [Not Recovered/Not Resolved]
  - Off label use [Unknown]
  - Drug effect incomplete [Unknown]
  - Renal impairment [Unknown]
  - Prescribed overdose [Unknown]

NARRATIVE: CASE EVENT DATE: 201709
